FAERS Safety Report 4884938-7 (Version None)
Quarter: 2006Q1

REPORT INFORMATION
  Report Type: 
  Country: None (occurrence: None)
  Receive Date: 20060119
  Receipt Date: 20060110
  Transmission Date: 20060701
  Serious: Yes (Hospitalization)
  Sender: FDA-Public Use
  Company Number: US-JNJFOC-20060102739

PATIENT
  Sex: Female

DRUGS (5)
  1. EXTRA STRENGTH TYLENOL [Suspect]
  2. EXTRA STRENGTH TYLENOL [Suspect]
  3. COUMADIN [Concomitant]
  4. ZOCOR [Concomitant]
  5. ATENOLOL [Concomitant]
     Indication: HYPERTENSION

REACTIONS (1)
  - LARGE INTESTINAL HAEMORRHAGE [None]
